FAERS Safety Report 8199307-4 (Version None)
Quarter: 2012Q1

REPORT INFORMATION
  Report Type: 
  Country: None (occurrence: None)
  Receive Date: 20120309
  Receipt Date: 20120302
  Transmission Date: 20120608
  Serious: Yes (Death)
  Sender: FDA-Public Use
  Company Number: JP-PFIZER INC-2011173542

PATIENT
  Age: 65 Year
  Sex: Male

DRUGS (1)
  1. ZOSYN [Suspect]
     Indication: URINARY TRACT INFECTION
     Dosage: 4.5 G, 2X/DAY
     Route: 041
     Dates: start: 20100705, end: 20100710

REACTIONS (1)
  - RENAL DISORDER [None]
